FAERS Safety Report 5727687-5 (Version None)
Quarter: 2008Q2

REPORT INFORMATION
  Report Type: 
  Country: None (occurrence: None)
  Receive Date: 20080501
  Receipt Date: 20070816
  Transmission Date: 20081010
  Serious: Yes (Other)
  Sender: FDA-Public Use
  Company Number: PHEH2007US08612

PATIENT
  Sex: Male

DRUGS (2)
  1. LOTREL [Suspect]
     Indication: HYPERTENSION
     Dosage: 5/20 MG, BID, ORAL ; 5/20 MG, QD, AM, ORAL ; 5/20 MG, QD, HS, ORAL
     Route: 048
  2. LOTREL [Suspect]
     Indication: HYPERTENSION
     Dosage: 5/20 MG, BID, ORAL ; 5/20 MG, QD, AM, ORAL ; 5/20 MG, QD, HS, ORAL
     Route: 048

REACTIONS (4)
  - BACK PAIN [None]
  - BLOOD PRESSURE INADEQUATELY CONTROLLED [None]
  - DIZZINESS [None]
  - URINE COLOUR ABNORMAL [None]
